FAERS Safety Report 24784764 (Version 1)
Quarter: 2024Q4

REPORT INFORMATION
  Report Type: Report from Study
  Country: US (occurrence: US)
  Receive Date: 20241228
  Receipt Date: 20241228
  Transmission Date: 20250114
  Serious: Yes (Other)
  Sender: ROCHE
  Company Number: US-ROCHE-10000162724

PATIENT
  Age: 47 Year
  Sex: Female

DRUGS (1)
  1. EVRYSDI [Suspect]
     Active Substance: RISDIPLAM
     Indication: Spinal muscular atrophy
     Route: 065

REACTIONS (3)
  - Multiple sclerosis [Unknown]
  - Product dose omission issue [Unknown]
  - Product complaint [Unknown]
